FAERS Safety Report 10042213 (Version 1)
Quarter: 2014Q1

REPORT INFORMATION
  Report Type: Spontaneous
  Country: BR (occurrence: BR)
  Receive Date: 20140327
  Receipt Date: 20140327
  Transmission Date: 20141002
  Serious: Yes (Hospitalization)
  Sender: FDA-Public Use
  Company Number: BR-GLAXOSMITHKLINE-A1066951A

PATIENT
  Age: 58 Year
  Sex: Female
  Weight: 59 kg

DRUGS (3)
  1. SERETIDE [Suspect]
     Indication: BRONCHITIS
     Dosage: 1PUFF PER DAY
     Route: 065
     Dates: start: 2012
  2. ARADOIS [Concomitant]
  3. ASPIRIN [Concomitant]

REACTIONS (7)
  - Hypotension [Recovered/Resolved]
  - Syncope [Recovered/Resolved]
  - Expired drug administered [Recovered/Resolved]
  - Nasal septal operation [Unknown]
  - Nasal cyst [Unknown]
  - Pharyngeal cyst [Unknown]
  - Tonsillectomy [Unknown]
